FAERS Safety Report 8444020-9 (Version None)
Quarter: 2012Q2

REPORT INFORMATION
  Report Type: 
  Country: None (occurrence: None)
  Receive Date: 20120618
  Receipt Date: 20120613
  Transmission Date: 20120825
  Serious: Yes (Hospitalization)
  Sender: FDA-Public Use
  Company Number: PHHO2009JP15975

PATIENT
  Sex: Male
  Weight: 48 kg

DRUGS (13)
  1. TAMSULOSIN HYDROCHLORIDE [Concomitant]
     Indication: BENIGN PROSTATIC HYPERPLASIA
     Dosage: 0.2 MG, UNK
     Route: 048
     Dates: start: 20080627
  2. EVEROLIMUS [Suspect]
     Indication: RENAL TRANSPLANT
     Dosage: 1 MG, UNK
     Route: 048
     Dates: start: 20080522
  3. RABEPRAZOLE SODIUM [Concomitant]
     Indication: GASTRITIS PROPHYLAXIS
     Dosage: 10 MG, UNK
     Route: 048
     Dates: start: 20080521
  4. COTRIM [Concomitant]
     Indication: INFECTION PROPHYLAXIS
     Dosage: 1 DF ORALLY
     Dates: start: 20080522
  5. ALOSENN [Concomitant]
     Indication: CONSTIPATION
     Dosage: 2 DF
     Route: 048
     Dates: start: 20080508
  6. PREDNISOLONE [Concomitant]
     Indication: RENAL TRANSPLANT
     Dosage: 5 MG, UNK
     Route: 048
     Dates: start: 20080523
  7. SIMULECT [Concomitant]
     Dosage: 20 MG, ONCE/SINGLE
     Route: 042
  8. AMLODIPINE [Concomitant]
     Indication: HYPERTENSION
     Dosage: 5 MG, UNK
     Route: 048
     Dates: start: 20080527
  9. ALLOID [Concomitant]
     Indication: GASTRITIS PROPHYLAXIS
     Dosage: 45 ML
     Route: 048
     Dates: start: 20080523
  10. LOCHOLEST [Concomitant]
     Indication: HYPERCHOLESTEROLAEMIA
     Dosage: 20 MG, UNK
     Route: 048
     Dates: start: 20081114
  11. ADALAT [Concomitant]
     Indication: HYPERTENSION
     Dosage: 20 MG, UNK
     Route: 048
     Dates: start: 20080529
  12. NEORAL [Suspect]
     Indication: RENAL TRANSPLANT
     Dosage: 100 MG, UNK
     Route: 048
     Dates: start: 20080518
  13. ASPIRIN [Concomitant]
     Dosage: 100 MG, UNK
     Route: 048
     Dates: start: 20080522

REACTIONS (3)
  - MALAISE [None]
  - PROTEINURIA [None]
  - OEDEMA PERIPHERAL [None]
